FAERS Safety Report 19373036 (Version 1)
Quarter: 2021Q2

REPORT INFORMATION
  Report Type: Spontaneous
  Country: US (occurrence: US)
  Receive Date: 20210604
  Receipt Date: 20210604
  Transmission Date: 20210717
  Serious: Yes (Disabling)
  Sender: FDA-Public Use
  Company Number: None

PATIENT
  Age: 43 Year
  Sex: Female

DRUGS (1)
  1. XYLOCAINE [Suspect]
     Active Substance: LIDOCAINE HYDROCHLORIDE
     Dosage: ?          OTHER FREQUENCY:ONE TIME DOSE;OTHER ROUTE:NERVE BLOCK?

REACTIONS (3)
  - Osteomyelitis [None]
  - Skin ulcer [None]
  - Localised infection [None]

NARRATIVE: CASE EVENT DATE: 20210518
